FAERS Safety Report 13965302 (Version 1)
Quarter: 2017Q3

REPORT INFORMATION
  Report Type: Spontaneous
  Country: US (occurrence: US)
  Receive Date: 20170913
  Receipt Date: 20170913
  Transmission Date: 20171128
  Serious: No
  Sender: FDA-Public Use
  Company Number: US-VIVUS, INC.-2016V1000290

PATIENT
  Age: 22 Year
  Sex: Female
  Weight: 95.34 kg

DRUGS (3)
  1. MONOLINYAH [Concomitant]
     Indication: CONTRACEPTION
     Route: 048
     Dates: start: 2014, end: 20160801
  2. QSYMIA [Suspect]
     Active Substance: PHENTERMINE HYDROCHLORIDE\TOPIRAMATE
     Indication: WEIGHT DECREASED
     Route: 048
     Dates: start: 201607, end: 2016
  3. QSYMIA [Suspect]
     Active Substance: PHENTERMINE HYDROCHLORIDE\TOPIRAMATE
     Indication: WEIGHT DECREASED
     Route: 048
     Dates: start: 2016, end: 201607

REACTIONS (4)
  - Tension headache [Recovered/Resolved]
  - Photophobia [Recovered/Resolved]
  - Irregular breathing [Recovered/Resolved]
  - Feeling abnormal [Recovered/Resolved]

NARRATIVE: CASE EVENT DATE: 201607
